FAERS Safety Report 8578722-0 (Version None)
Quarter: 2012Q3

REPORT INFORMATION
  Report Type: 
  Country: None (occurrence: None)
  Receive Date: 20120808
  Receipt Date: 20120803
  Transmission Date: 20120928
  Serious: No
  Sender: FDA-Public Use
  Company Number: US-PFIZER INC-2012189476

PATIENT
  Age: 27 Year
  Sex: Male
  Weight: 106 kg

DRUGS (2)
  1. EFFEXOR [Suspect]
     Dosage: 75 MG, 3X/DAY
     Route: 048
     Dates: start: 20100101
  2. BUPROPION [Concomitant]
     Dosage: 100MG DAILY AND 150MG DAILY

REACTIONS (4)
  - BLOOD URIC ACID INCREASED [None]
  - MONOCYTE COUNT INCREASED [None]
  - EOSINOPHIL COUNT INCREASED [None]
  - BLOOD TRIGLYCERIDES INCREASED [None]
